FAERS Safety Report 11745189 (Version 1)
Quarter: 2015Q4

REPORT INFORMATION
  Report Type: Spontaneous
  Country: US (occurrence: US)
  Receive Date: 20151117
  Receipt Date: 20151117
  Transmission Date: 20160304
  Serious: Yes (Other)
  Sender: FDA-Public Use
  Company Number: US-BEH-2015055683

PATIENT
  Age: 60 Year
  Sex: Female
  Weight: 87 kg

DRUGS (40)
  1. PREDNISONE. [Concomitant]
     Active Substance: PREDNISONE
  2. PERCOCET [Concomitant]
     Active Substance: ACETAMINOPHEN\OXYCODONE HYDROCHLORIDE
  3. ENTOCORT [Concomitant]
     Active Substance: BUDESONIDE
  4. SINGULAIR [Concomitant]
     Active Substance: MONTELUKAST SODIUM
  5. ZOMIG [Concomitant]
     Active Substance: ZOLMITRIPTAN
  6. THEO-DUR [Concomitant]
     Active Substance: THEOPHYLLINE ANHYDROUS
  7. VERAMYST [Concomitant]
     Active Substance: FLUTICASONE FUROATE
  8. TYLENOL [Concomitant]
     Active Substance: ACETAMINOPHEN
  9. PAXIL [Concomitant]
     Active Substance: PAROXETINE HYDROCHLORIDE
  10. MAXALT [Concomitant]
     Active Substance: RIZATRIPTAN BENZOATE
  11. LAMICTAL [Concomitant]
     Active Substance: LAMOTRIGINE
  12. METOPROLOL SUCCINATE. [Concomitant]
     Active Substance: METOPROLOL SUCCINATE
  13. RANITIDINE [Concomitant]
     Active Substance: RANITIDINE\RANITIDINE HYDROCHLORIDE
  14. DIOVAN [Concomitant]
     Active Substance: VALSARTAN
  15. HYDROCHLORTHIAZIDE [Concomitant]
     Active Substance: HYDROCHLOROTHIAZIDE
  16. PATANASE [Concomitant]
     Active Substance: OLOPATADINE HYDROCHLORIDE
  17. TRILEPTAL [Concomitant]
     Active Substance: OXCARBAZEPINE
  18. TOPAMAX [Concomitant]
     Active Substance: TOPIRAMATE
  19. HIZENTRA [Suspect]
     Active Substance: HUMAN IMMUNOGLOBULIN G
     Indication: HYPOGAMMAGLOBULINAEMIA
     Dosage: 1 GM 5 ML VIAL
     Route: 058
  20. VERAPAMIL [Concomitant]
     Active Substance: VERAPAMIL HYDROCHLORIDE
  21. METOCLOPRAMIDE. [Concomitant]
     Active Substance: METOCLOPRAMIDE
  22. XANAX [Concomitant]
     Active Substance: ALPRAZOLAM
  23. FLUTICASONE PROPIONATE. [Concomitant]
     Active Substance: FLUTICASONE PROPIONATE
  24. TOPAMAX [Concomitant]
     Active Substance: TOPIRAMATE
  25. ADVAIR HFA [Concomitant]
     Active Substance: FLUTICASONE PROPIONATE\SALMETEROL XINAFOATE
  26. PRILOSEC [Concomitant]
     Active Substance: OMEPRAZOLE MAGNESIUM
  27. AMLODIPINE BESYLATE. [Concomitant]
     Active Substance: AMLODIPINE BESYLATE
  28. POLYSPORIN [Concomitant]
     Active Substance: BACITRACIN ZINC\POLYMYXIN B SULFATE
  29. TYLENOL WITH CODEINE [Concomitant]
     Active Substance: ACETAMINOPHEN\CODEINE PHOSPHATE
  30. ALEVE [Concomitant]
     Active Substance: NAPROXEN SODIUM
  31. HIZENTRA [Suspect]
     Active Substance: HUMAN IMMUNOGLOBULIN G
     Indication: HYPOGAMMAGLOBULINAEMIA
     Dosage: 4 GM 20 ML VIAL
     Route: 058
  32. DIPHENHYDRAMINE. [Concomitant]
     Active Substance: DIPHENHYDRAMINE
  33. LOVENOX [Concomitant]
     Active Substance: ENOXAPARIN SODIUM
  34. DOXYCYCLINE. [Concomitant]
     Active Substance: DOXYCYCLINE
  35. HYDROCORTISONE. [Concomitant]
     Active Substance: HYDROCORTISONE
  36. ALBUTEROL. [Concomitant]
     Active Substance: ALBUTEROL
  37. EPIPEN [Concomitant]
     Active Substance: EPINEPHRINE
  38. LMX [Concomitant]
     Active Substance: LIDOCAINE
  39. KLOR-CON [Concomitant]
     Active Substance: POTASSIUM CHLORIDE
  40. LASIX [Concomitant]
     Active Substance: FUROSEMIDE

REACTIONS (2)
  - Headache [Recovered/Resolved]
  - Cholecystectomy [Recovered/Resolved]

NARRATIVE: CASE EVENT DATE: 20151103
